FAERS Safety Report 7191402-1 (Version None)
Quarter: 2010Q4

REPORT INFORMATION
  Report Type: 
  Country: None (occurrence: None)
  Receive Date: 20101223
  Receipt Date: 20101217
  Transmission Date: 20110411
  Serious: Yes (Other)
  Sender: FDA-Public Use
  Company Number: CA-ROCHE-748866

PATIENT
  Sex: Male

DRUGS (4)
  1. BEVACIZUMAB [Suspect]
     Indication: GLIOBLASTOMA
     Route: 042
     Dates: start: 20100902
  2. DILANTIN [Concomitant]
  3. DECADRON [Concomitant]
  4. ZANTAC [Concomitant]

REACTIONS (5)
  - AMNESIA [None]
  - EYE INFECTION [None]
  - MUSCULOSKELETAL CHEST PAIN [None]
  - NASOPHARYNGITIS [None]
  - OEDEMA [None]
